FAERS Safety Report 19021888 (Version 2)
Quarter: 2022Q3

REPORT INFORMATION
  Report Type: Spontaneous
  Country: US (occurrence: US)
  Receive Date: 20210318
  Receipt Date: 20220912
  Transmission Date: 20221027
  Serious: Yes (Other)
  Sender: FDA-Public Use
  Company Number: US-SA-SAC20210315000266

PATIENT
  Age: 60 Year
  Sex: Male

DRUGS (1)
  1. ZANTAC [Suspect]
     Active Substance: RANITIDINE HYDROCHLORIDE
     Indication: Dyspepsia
     Dosage: 150 MG
     Route: 065
     Dates: start: 201501, end: 201907

REACTIONS (2)
  - Lung carcinoma cell type unspecified stage III [Recovering/Resolving]
  - Laryngeal cancer stage III [Recovering/Resolving]

NARRATIVE: CASE EVENT DATE: 20190701
